FAERS Safety Report 5852197-4 (Version None)
Quarter: 2008Q3

REPORT INFORMATION
  Report Type: 
  Country: None (occurrence: None)
  Receive Date: 20080820
  Receipt Date: 20080820
  Transmission Date: 20090109
  Serious: No
  Sender: FDA-Public Use
  Company Number: None

PATIENT
  Age: 64 Year
  Sex: Female

DRUGS (2)
  1. METOPROLOL TARTRATE [Suspect]
     Dosage: TABLET
  2. METOPROLOL SUCCINATE EXTENDED RELEASE [Suspect]
     Dosage: TABLET, EXTENDED RELEASE

REACTIONS (2)
  - DRUG DISPENSING ERROR [None]
  - MEDICATION ERROR [None]
